FAERS Safety Report 4801397-0 (Version None)
Quarter: 2005Q4

REPORT INFORMATION
  Report Type: 
  Country: None (occurrence: None)
  Receive Date: 20051011
  Receipt Date: 20050928
  Transmission Date: 20060501
  Serious: Yes (Other)
  Sender: FDA-Public Use
  Company Number: 217578

PATIENT
  Age: 80 Year
  Sex: Male

DRUGS (2)
  1. RITUXAN [Suspect]
     Indication: ANAEMIA HAEMOLYTIC AUTOIMMUNE
     Dosage: 375 MG/M2, 1/WEEK, INTRAVENOUS
     Route: 042
     Dates: start: 20040501
  2. SUPPLEMENTAL OXYGEN (OXYGEN) [Concomitant]

REACTIONS (3)
  - DISEASE PROGRESSION [None]
  - KAPOSI'S SARCOMA [None]
  - PANCYTOPENIA [None]
